FAERS Safety Report 17236271 (Version 1)
Quarter: 2020Q1

REPORT INFORMATION
  Report Type: Spontaneous
  Country: JP (occurrence: JP)
  Receive Date: 20200106
  Receipt Date: 20200106
  Transmission Date: 20200409
  Serious: Yes (Hospitalization, Other)
  Sender: FDA-Public Use
  Company Number: JP-BRISTOL-MYERS SQUIBB COMPANY-BMS-2019-093306

PATIENT
  Age: 71 Year
  Sex: Male

DRUGS (1)
  1. HYDREA [Suspect]
     Active Substance: HYDROXYUREA
     Indication: MYELOPROLIFERATIVE NEOPLASM
     Dosage: 500 MILLIGRAM, BID
     Route: 048
     Dates: start: 20170830

REACTIONS (2)
  - Hyperglycaemia [Recovered/Resolved]
  - Post procedural haemorrhage [Unknown]

NARRATIVE: CASE EVENT DATE: 20190925
